FAERS Safety Report 10270291 (Version 4)
Quarter: 2014Q4

REPORT INFORMATION
  Report Type: Report from Study
  Country: US (occurrence: None)
  Receive Date: 20140626
  Receipt Date: 20141204
  Transmission Date: 20150528
  Serious: Yes (Death, Hospitalization)
  Sender: FDA-Public Use
  Company Number: 2406873

PATIENT
  Age: 37 Year
  Sex: Female
  Weight: 59.1 kg

DRUGS (10)
  1. SODIUM CHLORIDE 0.9% INJECTION, USP (SODIUM CHLORIDE) [Suspect]
     Active Substance: SODIUM CHLORIDE
     Indication: PROPHYLACTIC CHEMOTHERAPY
     Dosage: 1000 ML MILLILITRE(S), AS NECESSARY, UNKNOWN
     Dates: start: 20140408, end: 20140505
  2. LORAZEPAM. [Concomitant]
     Active Substance: LORAZEPAM
  3. GUAIFENESIN/CODEINE [Concomitant]
  4. OXYCODONE HYDROCHLORIDE. [Concomitant]
     Active Substance: OXYCODONE HYDROCHLORIDE
  5. INVESTIGATIONAL DRUG [Concomitant]
     Active Substance: INVESTIGATIONAL PRODUCT
  6. OXYCODONE [Concomitant]
     Active Substance: OXYCODONE
  7. (CISPLATIN) [Suspect]
     Active Substance: CISPLATIN
     Indication: BREAST CANCER
     Dosage: 103.8 MG MILLIGRAM(S),  1 WEEK, INTRAVENOUS DRIP
     Route: 041
     Dates: start: 20140408
  8. ONDANSETRON HYDROCHLORIDE. [Concomitant]
     Active Substance: ONDANSETRON HYDROCHLORIDE
  9. SERTRALINE HYDROCHLORIDE. [Concomitant]
     Active Substance: SERTRALINE HYDROCHLORIDE
  10. GRANISETRON HYDROCHLORIDE. [Concomitant]
     Active Substance: GRANISETRON HYDROCHLORIDE

REACTIONS (11)
  - Hypoxia [None]
  - Insomnia [None]
  - Tachypnoea [None]
  - Pleural effusion [None]
  - Dyspnoea [None]
  - Nausea [None]
  - Breast cancer [None]
  - Malignant neoplasm progression [None]
  - Chest X-ray abnormal [None]
  - Vertigo [None]
  - Disease progression [None]

NARRATIVE: CASE EVENT DATE: 20140505
